FAERS Safety Report 7458348-2 (Version None)
Quarter: 2011Q2

REPORT INFORMATION
  Report Type: 
  Country: None (occurrence: None)
  Receive Date: 20110504
  Receipt Date: 20110426
  Transmission Date: 20111010
  Serious: Yes (Other)
  Sender: FDA-Public Use
  Company Number: US-PFIZER INC-2004068962

PATIENT
  Age: 56 Year
  Sex: Male

DRUGS (13)
  1. BENADRYL INJECTION [Suspect]
     Indication: PRURITUS
     Route: 065
  2. VANCOMYCIN [Suspect]
     Indication: ILL-DEFINED DISORDER
     Route: 042
  3. INSULIN GLARGINE [Concomitant]
     Route: 065
  4. RAMIPRIL [Concomitant]
     Route: 065
  5. LINEZOLID [Suspect]
     Indication: ILL-DEFINED DISORDER
     Route: 065
  6. BENADRYL INJECTION [Suspect]
     Route: 042
  7. FLUCONAZOLE [Concomitant]
     Route: 065
  8. CIPROFLOXACIN HCL [Concomitant]
     Route: 065
  9. AZTREONAM [Suspect]
     Indication: ILL-DEFINED DISORDER
     Route: 065
  10. ROSIGLITAZONE MALEATE [Concomitant]
     Route: 065
  11. PIPERACILLIN AND TAZOBACTAM [Suspect]
     Indication: ILL-DEFINED DISORDER
     Route: 065
  12. METRONIDAZOLE [Suspect]
     Indication: ILL-DEFINED DISORDER
     Route: 065
  13. CLOPIDOGREL SULFATE [Concomitant]
     Route: 065

REACTIONS (14)
  - RASH [None]
  - PETECHIAE [None]
  - SKIN WARM [None]
  - AGGRESSION [None]
  - STRABISMUS [None]
  - EYELID OEDEMA [None]
  - WHITE BLOOD CELL COUNT DECREASED [None]
  - PRURITUS [None]
  - TACHYCARDIA [None]
  - SKIN LESION [None]
  - DELIRIUM [None]
  - PURPURA [None]
  - BODY TEMPERATURE INCREASED [None]
  - NAUSEA [None]
